FAERS Safety Report 5234232-X (Version None)
Quarter: 2007Q1

REPORT INFORMATION
  Report Type: 
  Country: None (occurrence: None)
  Receive Date: 20070209
  Receipt Date: 20070129
  Transmission Date: 20070707
  Serious: Yes (Other)
  Sender: FDA-Public Use
  Company Number: PHBS2007JP01875

PATIENT
  Sex: Male

DRUGS (2)
  1. DIOVAN [Suspect]
     Indication: HYPERTENSION
     Dosage: 80 MG/DAY
     Route: 048
  2. PEGASYS [Concomitant]
     Dates: end: 20061030

REACTIONS (2)
  - CELL MARKER INCREASED [None]
  - INTERSTITIAL LUNG DISEASE [None]
